FAERS Safety Report 10717249 (Version 2)
Quarter: 2015Q1

REPORT INFORMATION
  Report Type: Spontaneous
  Country: FR (occurrence: FR)
  Receive Date: 20150116
  Receipt Date: 20150123
  Transmission Date: 20150721
  Serious: Yes (Hospitalization, Other)
  Sender: FDA-Public Use
  Company Number: FR-SHIRE-FR201500291

PATIENT
  Age: 81 Year
  Sex: Male

DRUGS (8)
  1. HYDREA [Suspect]
     Active Substance: HYDROXYUREA
     Indication: ESSENTIAL THROMBOCYTHAEMIA
     Dosage: 500 MG, 1X/DAY:QD
     Route: 048
     Dates: start: 2007, end: 20140603
  2. AMLODIPINE [Concomitant]
     Active Substance: AMLODIPINE BESYLATE
     Indication: PRODUCT USED FOR UNKNOWN INDICATION
     Dosage: 10 MG, 1X/DAY:QD
     Route: 048
  3. XAGRID [Suspect]
     Active Substance: ANAGRELIDE HYDROCHLORIDE
     Indication: ESSENTIAL THROMBOCYTHAEMIA
     Dosage: 0.5 MG, UNKNOWN
     Route: 048
     Dates: start: 20140603, end: 20140610
  4. XAGRID [Suspect]
     Active Substance: ANAGRELIDE HYDROCHLORIDE
     Dosage: 0.5 MG, UNKNOWN
     Route: 048
     Dates: start: 20140612
  5. PERINDOPRIL [Concomitant]
     Active Substance: PERINDOPRIL
     Indication: PRODUCT USED FOR UNKNOWN INDICATION
     Dosage: 4 MG, 1X/DAY:QD
     Route: 048
  6. RILMENIDINE [Concomitant]
     Active Substance: RILMENIDINE
     Indication: PRODUCT USED FOR UNKNOWN INDICATION
     Dosage: 1 MG, 1X/DAY:QD
     Route: 048
  7. KARDEGIC [Concomitant]
     Active Substance: ASPIRIN LYSINE
     Indication: PRODUCT USED FOR UNKNOWN INDICATION
     Dosage: 75 MG, 1X/DAY:QD
     Route: 048
  8. METOPROLOL TARTRATE. [Concomitant]
     Active Substance: METOPROLOL TARTRATE
     Indication: PRODUCT USED FOR UNKNOWN INDICATION
     Dosage: 25 MG, OTHER (2 PER DAY)
     Route: 048

REACTIONS (11)
  - Condition aggravated [Not Recovered/Not Resolved]
  - Erysipelas [Unknown]
  - Oedema peripheral [Unknown]
  - Skin ulcer [Not Recovered/Not Resolved]
  - Dermo-hypodermitis [Unknown]
  - Purpura [Recovering/Resolving]
  - Sepsis [Unknown]
  - Rash macular [Unknown]
  - Intestinal obstruction [Unknown]
  - Renal failure [Unknown]
  - General physical health deterioration [Unknown]

NARRATIVE: CASE EVENT DATE: 20140604
